FAERS Safety Report 14474710 (Version 1)
Quarter: 2018Q1

REPORT INFORMATION
  Report Type: Spontaneous
  Country: US (occurrence: US)
  Receive Date: 20180131
  Receipt Date: 20180131
  Transmission Date: 20180509
  Serious: No
  Sender: FDA-Public Use
  Company Number: None

PATIENT
  Age: 24 Year
  Sex: Female
  Weight: 140.16 kg

DRUGS (1)
  1. NEXPLANON [Suspect]
     Active Substance: ETONOGESTREL
     Indication: MENORRHAGIA
     Dates: start: 20180108, end: 20180126

REACTIONS (4)
  - Chemical burn [None]
  - Implant site necrosis [None]
  - Wrong technique in device usage process [None]
  - Implant site hypertrophy [None]

NARRATIVE: CASE EVENT DATE: 20180126
